FAERS Safety Report 5415470-X (Version None)
Quarter: 2007Q3

REPORT INFORMATION
  Report Type: 
  Country: None (occurrence: None)
  Receive Date: 20070813
  Receipt Date: 20070809
  Transmission Date: 20080115
  Serious: Yes (Death)
  Sender: FDA-Public Use
  Company Number: TIF2007A00134

PATIENT
  Age: 85 Year
  Sex: Female

DRUGS (7)
  1. LANSOX (LANSOPRAZOLE) [Suspect]
     Indication: ABDOMINAL PAIN UPPER
     Dosage: 30 MG
     Dates: start: 20061005, end: 20061005
  2. GABAPENTIN [Suspect]
     Indication: DIABETIC NEUROPATHY
     Dosage: 450 MG (150 MG, 3 IN 1 D)
     Dates: start: 20061005, end: 20061008
  3. INSULIN LISPRO (INSULIN LISPRO) [Concomitant]
  4. RAMIPRIL [Concomitant]
  5. ASPIRIN [Concomitant]
  6. DILTIAZEM [Concomitant]
  7. SERENASE (HALOPERIDOL) [Suspect]
     Indication: PSYCHOMOTOR HYPERACTIVITY
     Dosage: 10 MG,
     Dates: start: 20061005, end: 20061005

REACTIONS (4)
  - RENAL FAILURE ACUTE [None]
  - RESPIRATORY FAILURE [None]
  - RHABDOMYOLYSIS [None]
  - SOMNOLENCE [None]
